FAERS Safety Report 7037959-2 (Version None)
Quarter: 2010Q4

REPORT INFORMATION
  Report Type: 
  Country: None (occurrence: None)
  Receive Date: 20101011
  Receipt Date: 20100930
  Transmission Date: 20110411
  Serious: Yes (Disabling, Other)
  Sender: FDA-Public Use
  Company Number: CH-AMGEN-KDL424479

PATIENT
  Sex: Female
  Weight: 53 kg

DRUGS (5)
  1. NPLATE [Suspect]
     Indication: IDIOPATHIC THROMBOCYTOPENIC PURPURA
     Route: 058
     Dates: start: 20100211
  2. RITUXIMAB [Concomitant]
     Route: 042
     Dates: start: 20091026, end: 20100607
  3. DILTIAZEM [Concomitant]
  4. LYRICA [Concomitant]
     Dates: end: 20100601
  5. BENDAMUSTIN [Concomitant]
     Route: 042
     Dates: start: 20091226, end: 20100607

REACTIONS (3)
  - CSF PROTEIN INCREASED [None]
  - MUSCULAR WEAKNESS [None]
  - PAIN IN EXTREMITY [None]
